FAERS Safety Report 9257706 (Version 1)
Quarter: 2013Q2

REPORT INFORMATION
  Report Type: Spontaneous
  Country: US (occurrence: None)
  Receive Date: 20130424
  Receipt Date: 20130424
  Transmission Date: 20140414
  Serious: Yes (Hospitalization, Other)
  Sender: FDA-Public Use
  Company Number: None

PATIENT
  Age: 27 Year
  Sex: Female
  Weight: 118.84 kg

DRUGS (1)
  1. BOTOX [Suspect]
     Dosage: 155 UNITS IM
     Dates: start: 20120901, end: 20130418

REACTIONS (4)
  - Rash erythematous [None]
  - Burning sensation [None]
  - Pain [None]
  - Hypersensitivity [None]
